FAERS Safety Report 7762909-0 (Version None)
Quarter: 2011Q3

REPORT INFORMATION
  Report Type: 
  Country: None (occurrence: None)
  Receive Date: 20110920
  Receipt Date: 20110915
  Transmission Date: 20111222
  Serious: Yes (Death)
  Sender: FDA-Public Use
  Company Number: AR-PFIZER INC-AR-WYE-H11866109

PATIENT
  Age: 78 Year
  Sex: Male
  Weight: 76 kg

DRUGS (5)
  1. ATENOLOL [Concomitant]
     Indication: CARDIAC FAILURE
     Dosage: UNK
     Dates: start: 20080501, end: 20091023
  2. ATORVASTATIN [Concomitant]
     Indication: DYSLIPIDAEMIA
     Dosage: UNK
     Dates: start: 20080729, end: 20091023
  3. NIMODIPINE [Concomitant]
     Indication: PERIPHERAL VASCULAR DISORDER
     Dosage: UNK
     Dates: start: 20080301, end: 20091023
  4. TEMSIROLIMUS [Suspect]
     Indication: RENAL CELL CARCINOMA
     Dosage: 25.0 MG,1X/WK
     Route: 042
     Dates: start: 20080806, end: 20091022
  5. GLUCOSAMINE [Concomitant]
     Indication: OSTEOARTHRITIS
     Dosage: UNK
     Dates: start: 20080301, end: 20091023

REACTIONS (1)
  - SUDDEN DEATH [None]
